FAERS Safety Report 19946684 (Version 1)
Quarter: 2021Q4

REPORT INFORMATION
  Report Type: Spontaneous
  Country: US (occurrence: US)
  Receive Date: 20211013
  Receipt Date: 20211013
  Transmission Date: 20220303
  Serious: Yes (Life-Threatening, Hospitalization)
  Sender: FDA-Public Use
  Company Number: US-JNJFOC-20210958116

PATIENT
  Age: 37 Year
  Sex: Female
  Weight: 57.9 kg

DRUGS (7)
  1. TYLENOL [Suspect]
     Active Substance: ACETAMINOPHEN
     Indication: Product used for unknown indication
     Dosage: 4000 MG/DAY (396000 MG OVER 99 DAYS)
     Route: 048
     Dates: start: 200001, end: 20000319
  2. VICODIN [Suspect]
     Active Substance: ACETAMINOPHEN\HYDROCODONE BITARTRATE
     Indication: Product used for unknown indication
     Dosage: 1500 MG/ UNKNOWN DOSE DAY (146500 MG OVER 99 DAYS)
     Route: 048
     Dates: start: 200001, end: 20000319
  3. PROZAC [Concomitant]
     Active Substance: FLUOXETINE HYDROCHLORIDE
     Indication: Product used for unknown indication
     Route: 065
  4. .ALPHA.-TOCOPHEROL [Concomitant]
     Active Substance: .ALPHA.-TOCOPHEROL
     Indication: Product used for unknown indication
     Route: 065
  5. VITAMINS NOS [Concomitant]
     Active Substance: VITAMINS
     Indication: Product used for unknown indication
     Route: 065
  6. COD LIVER OIL [Concomitant]
     Active Substance: COD LIVER OIL
     Indication: Product used for unknown indication
     Route: 065
  7. TENORMIN [Concomitant]
     Active Substance: ATENOLOL

REACTIONS (6)
  - Acute hepatic failure [Recovered/Resolved]
  - Product administration error [Unknown]
  - Pneumonia [Recovered/Resolved]
  - Blood creatinine decreased [Recovered/Resolved]
  - Brain oedema [Recovered/Resolved]
  - Accidental overdose [Unknown]
